FAERS Safety Report 24615075 (Version 1)
Quarter: 2024Q4

REPORT INFORMATION
  Report Type: Report from Study
  Country: US (occurrence: US)
  Receive Date: 20241113
  Receipt Date: 20241113
  Transmission Date: 20250115
  Serious: Yes (Other)
  Sender: SAREPTA THERAPEUTICS
  Company Number: US-SAREPTA THERAPEUTICS INC.-SRP2024-005246

PATIENT
  Sex: Male

DRUGS (1)
  1. ELEVIDYS [Suspect]
     Active Substance: DELANDISTROGENE MOXEPARVOVEC-ROKL
     Indication: Product used for unknown indication
     Dosage: UNK, SINGLE
     Dates: start: 20241018, end: 20241018

REACTIONS (5)
  - Pericardial effusion [Not Recovered/Not Resolved]
  - Troponin increased [Not Recovered/Not Resolved]
  - Swelling face [Not Recovered/Not Resolved]
  - Sleep disorder [Not Recovered/Not Resolved]
  - Hyperhidrosis [Not Recovered/Not Resolved]
